FAERS Safety Report 8131675-1 (Version None)
Quarter: 2012Q1

REPORT INFORMATION
  Report Type: 
  Country: None (occurrence: None)
  Receive Date: 20120207
  Receipt Date: 20120131
  Transmission Date: 20120608
  Serious: Yes (Death, Hospitalization)
  Sender: FDA-Public Use
  Company Number: US-ZYDUS-000304

PATIENT
  Age: 11 Month
  Sex: Male
  Weight: 11 kg

DRUGS (2)
  1. BENAZEPRIL HYDROCHLORIDE [Suspect]
     Dosage: 180.00-MG
  2. AMLODIPINE [Suspect]
     Dosage: 45.00-MG

REACTIONS (4)
  - CIRCULATORY COLLAPSE [None]
  - VOMITING [None]
  - CAPSULE PHYSICAL ISSUE [None]
  - UNRESPONSIVE TO STIMULI [None]
